FAERS Safety Report 7787021-6 (Version None)
Quarter: 2011Q3

REPORT INFORMATION
  Report Type: 
  Country: None (occurrence: None)
  Receive Date: 20110929
  Receipt Date: 20110920
  Transmission Date: 20111222
  Serious: Yes (Death)
  Sender: FDA-Public Use
  Company Number: NZ-BAXTER-2011BH029701

PATIENT
  Age: 28 Year
  Sex: Male

DRUGS (3)
  1. DEXTROSE 10% [Suspect]
     Indication: MEDICAL DIET
     Route: 042
  2. TRAVASOL 10% W/ ELECTROLYTES [Suspect]
     Indication: MEDICAL DIET
     Route: 042
  3. CLINOLEIC 20% [Suspect]
     Indication: MEDICAL DIET
     Route: 042

REACTIONS (1)
  - DEATH [None]
